FAERS Safety Report 8983770 (Version 4)
Quarter: 2013Q4

REPORT INFORMATION
  Report Type: Report from Study
  Country: CA (occurrence: CA)
  Receive Date: 20121224
  Receipt Date: 20131004
  Transmission Date: 20140711
  Serious: Yes (Hospitalization)
  Sender: FDA-Public Use
  Company Number: CA-ROCHE-1167276

PATIENT
  Age: 58 Year
  Sex: Male
  Weight: 89.4 kg

DRUGS (10)
  1. PEG-INTERFERON ALFA 2A [Suspect]
     Indication: CHRONIC HEPATITIS C
     Dosage: LAST DOSE PRIOR TO AE ONSET: 07/DEC/2012, LAST DOSE 180 UG
     Route: 058
     Dates: start: 20120907
  2. RIBAVIRIN [Suspect]
     Indication: CHRONIC HEPATITIS C
     Dosage: LAST DOSE PRIOR TO AE ONSET:07/DEC/2012, LAST DOSE 600 MG
     Route: 048
     Dates: start: 20120907
  3. TELAPREVIR [Suspect]
     Indication: CHRONIC HEPATITIS C
     Dosage: LAST DOSE PRIOR TO AE ONSET: 28/NOV/2012, LAST DOSE 750 MG
     Route: 048
     Dates: start: 20120907
  4. NASONEX [Concomitant]
     Indication: NASAL CONGESTION
     Route: 065
     Dates: start: 20120630
  5. NASONEX [Concomitant]
     Indication: EAR CONGESTION
  6. TYLENOL [Concomitant]
     Dosage: INDICATION: CHILLS, HEADACHES, JOINT PAIN, LOWER BACK?PAIN
     Route: 065
     Dates: start: 20120908
  7. REACTINE (CANADA) [Concomitant]
     Indication: PRURITUS
     Route: 065
     Dates: start: 20121101
  8. SPIRONOLACTONE [Concomitant]
     Indication: JOINT SWELLING
     Route: 065
     Dates: start: 20121204
  9. NYSTATIN [Concomitant]
     Indication: ORAL CANDIDIASIS
     Route: 065
     Dates: start: 20121129, end: 20121130
  10. RO 5024048 (HCV POLYMERASE INHIBITOR) [Suspect]
     Indication: CHRONIC HEPATITIS C
     Dosage: DATE OF LAST DOSE PRIOR TO AE ONSET:07/DEC/2012, LAST DOSE TAKEN 1000 MG
     Route: 048
     Dates: start: 20120907

REACTIONS (1)
  - Gastroenteritis viral [Recovered/Resolved]
